FAERS Safety Report 4941682-5 (Version None)
Quarter: 2006Q1

REPORT INFORMATION
  Report Type: 
  Country: None (occurrence: None)
  Receive Date: 20060313
  Receipt Date: 20060228
  Transmission Date: 20060701
  Serious: Yes (Other)
  Sender: FDA-Public Use
  Company Number: AU-ROCHE-438351

PATIENT
  Age: 13 Year
  Sex: Male

DRUGS (1)
  1. ROACCUTANE [Suspect]
     Indication: ACNE
     Dosage: 1.0 DOSE UNSPECIFIED DAILY.
     Route: 048

REACTIONS (4)
  - BURNS THIRD DEGREE [None]
  - DEPRESSION [None]
  - SELF MUTILATION [None]
  - SUICIDE ATTEMPT [None]
